FAERS Safety Report 4806071-2 (Version None)
Quarter: 2005Q4

REPORT INFORMATION
  Report Type: 
  Country: None (occurrence: None)
  Receive Date: 20051019
  Receipt Date: 20051019
  Transmission Date: 20060501
  Serious: Yes (Life-Threatening)
  Sender: FDA-Public Use
  Company Number: None

PATIENT
  Age: 21 Year
  Sex: Male
  Weight: 125 kg

DRUGS (5)
  1. VALPROIC ACID [Suspect]
     Indication: CONVULSION
     Dosage: 500MG  IV
     Route: 042
     Dates: start: 20050910, end: 20051008
  2. VALPROIC ACID [Suspect]
     Indication: MENTAL STATUS CHANGES
     Dosage: 500MG  IV
     Route: 042
     Dates: start: 20050910, end: 20051008
  3. PHENOBARBITAL TAB [Concomitant]
  4. PHENYTOIN [Concomitant]
  5. KEPPRA [Concomitant]

REACTIONS (2)
  - DIALYSIS [None]
  - PLATELET COUNT DECREASED [None]
